FAERS Safety Report 8926081 (Version 1)
Quarter: 2012Q4

REPORT INFORMATION
  Report Type: 
  Country: CN (occurrence: CN)
  Receive Date: 20121126
  Receipt Date: 20121126
  Transmission Date: 20130627
  Serious: Yes (Death)
  Sender: FDA-Public Use
  Company Number: CN-BAYER-2012-121535

PATIENT
  Age: 90 Year
  Sex: Female
  Weight: 55 kg

DRUGS (1)
  1. BAYASPIRIN [Suspect]
     Indication: THROMBOCYTOSIS
     Dosage: 0.1 g, QD
     Route: 048
     Dates: start: 20090224, end: 20090306

REACTIONS (1)
  - Gastrointestinal haemorrhage [Fatal]
